FAERS Safety Report 9201994 (Version 1)
Quarter: 2013Q1

REPORT INFORMATION
  Report Type: Spontaneous
  Country: ES (occurrence: None)
  Receive Date: 20130327
  Receipt Date: 20130327
  Transmission Date: 20140127
  Serious: Yes (Other)
  Sender: FDA-Public Use
  Company Number: GER/SPN/13/0028682

PATIENT
  Age: 71 Year
  Sex: Female

DRUGS (8)
  1. CLOPIDOGREL [Suspect]
     Indication: TRANSIENT ISCHAEMIC ATTACK
  2. EXEMESTANE [Suspect]
     Indication: BREAST CANCER
     Dates: start: 20110616
  3. HYDROCHLOROTHIAZIDE (HYDROCHLOROTHIAZIDE) [Concomitant]
  4. LANSOPRAZOLE (LANSOPRAZOLE) [Concomitant]
  5. CYCLOBENZAPRINE  (CYCLOBENZAPRINE) [Concomitant]
  6. CLOMIPRAMINE (CLOMIPRAMINE) [Concomitant]
  7. CALCIUM (CALCIUM) [Concomitant]
  8. VITAMIN D (ERGOCALCIFEROL) [Concomitant]

REACTIONS (8)
  - Breast cancer [None]
  - Osteopenia [None]
  - Haematoma [None]
  - Intra-abdominal haematoma [None]
  - Drug interaction [None]
  - Oestrogen receptor assay positive [None]
  - Progesterone receptor assay positive [None]
  - Spinal disorder [None]
